FAERS Safety Report 16352182 (Version 1)
Quarter: 2019Q2

REPORT INFORMATION
  Report Type: Spontaneous
  Country: PT (occurrence: PT)
  Receive Date: 20190524
  Receipt Date: 20190524
  Transmission Date: 20190711
  Serious: Yes (Other)
  Sender: FDA-Public Use
  Company Number: PT-ACCORD-129009

PATIENT
  Age: 50 Year
  Sex: Female
  Weight: 64 kg

DRUGS (18)
  1. OXALIPLATIN ACCORD [Suspect]
     Active Substance: OXALIPLATIN
     Indication: RECTAL NEOPLASM
     Dosage: DOSAGE FORM:CONCENTRATE FOR SOLUTION FOR INFUSION
     Dates: start: 20190211
  2. FENTANYL. [Concomitant]
     Active Substance: FENTANYL
     Dosage: 12.5 MCG
     Route: 062
  3. DEXAMETHASONE. [Concomitant]
     Active Substance: DEXAMETHASONE
     Indication: PREMEDICATION
     Dosage: DILUTED IN 100 ML SF
     Route: 042
  4. OMEPRAZOLE. [Concomitant]
     Active Substance: OMEPRAZOLE
  5. MELOXICAM. [Concomitant]
     Active Substance: MELOXICAM
  6. PANTOPRAZOLE [Concomitant]
     Active Substance: PANTOPRAZOLE
     Indication: PREMEDICATION
     Dosage: DILUTED IN 10 ML SF
     Route: 042
  7. CAPECITABINE. [Concomitant]
     Active Substance: CAPECITABINE
     Indication: RECTAL NEOPLASM
     Dosage: 21/21 DAYS?ACTION TAKEN: DRUG WITHDRAWN
  8. POTASSIUM CHLORIDE. [Concomitant]
     Active Substance: POTASSIUM CHLORIDE
     Indication: PREMEDICATION
     Dosage: DILUTED IN 100 ML SF
  9. PARACETAMOL/TRAMADOL [Concomitant]
  10. MAGNESIUM SULFATE. [Concomitant]
     Active Substance: MAGNESIUM SULFATE
     Indication: PREMEDICATION
     Dosage: DILUTED IN 100 ML SF
  11. PARACETAMOL [Concomitant]
     Active Substance: ACETAMINOPHEN
  12. ONDANSETRON [Concomitant]
     Active Substance: ONDANSETRON
     Indication: PREMEDICATION
     Dosage: DILUTED IN 100 ML SF
     Route: 042
  13. CALCIUM GLUCONATE. [Concomitant]
     Active Substance: CALCIUM GLUCONATE
     Indication: PREMEDICATION
     Dosage: DILUTED IN 100 ML SF
  14. GLUCOSE/GLUCOSE MONOHYDRATE/GLUCOSE OXIDASE [Concomitant]
     Indication: PREMEDICATION
  15. FLEXIBAN [Concomitant]
     Active Substance: CYCLOBENZAPRINE
  16. GABAPENTIN. [Concomitant]
     Active Substance: GABAPENTIN
  17. AMITRIPTYLINE [Concomitant]
     Active Substance: AMITRIPTYLINE
  18. BEVACIZUMAB. [Concomitant]
     Active Substance: BEVACIZUMAB
     Indication: RECTAL NEOPLASM
     Dosage: 21/21 DAYS

REACTIONS (6)
  - Pruritus generalised [Recovered/Resolved]
  - Vomiting [Recovered/Resolved]
  - Hypertension [Recovered/Resolved]
  - Nausea [Recovered/Resolved]
  - Paraesthesia [Recovered/Resolved]
  - Erythema [Recovered/Resolved]

NARRATIVE: CASE EVENT DATE: 20190304
